FAERS Safety Report 8555508-4 (Version None)
Quarter: 2012Q3

REPORT INFORMATION
  Report Type: 
  Country: None (occurrence: None)
  Receive Date: 20120731
  Receipt Date: 20120113
  Transmission Date: 20120928
  Serious: No
  Sender: FDA-Public Use
  Company Number: US-ASTRAZENECA-2011SE06427

PATIENT
  Age: 51 Year
  Sex: Female
  Weight: 76.2 kg

DRUGS (8)
  1. SEROQUEL [Suspect]
     Route: 048
  2. SEROQUEL [Suspect]
     Route: 048
  3. EFFEXOR [Concomitant]
  4. SEROQUEL [Suspect]
     Route: 048
     Dates: start: 20110101
  5. LAMICTAL [Concomitant]
     Dosage: 2 TABLETS 200 MILLIGRAMS HS
  6. SEROQUEL [Suspect]
     Route: 048
  7. SEROQUEL [Suspect]
     Indication: BIPOLAR DISORDER
     Route: 048
     Dates: start: 20070101, end: 20110101
  8. SYNTHROID [Concomitant]
     Indication: HYPOTHYROIDISM

REACTIONS (9)
  - INCORRECT DOSE ADMINISTERED [None]
  - TREMOR [None]
  - NERVOUSNESS [None]
  - INFLUENZA [None]
  - INSOMNIA [None]
  - DRUG WITHDRAWAL SYNDROME [None]
  - PAIN [None]
  - DRUG DOSE OMISSION [None]
  - RHINORRHOEA [None]
